FAERS Safety Report 7379975-7 (Version None)
Quarter: 2011Q1

REPORT INFORMATION
  Report Type: 
  Country: None (occurrence: None)
  Receive Date: 20110329
  Receipt Date: 20110316
  Transmission Date: 20110831
  Serious: Yes (Other)
  Sender: FDA-Public Use
  Company Number: PHFR2010GB05178

PATIENT

DRUGS (2)
  1. CLOZARIL [Suspect]
     Indication: SCHIZOPHRENIA
     Dosage: 100 MG, BID
     Route: 048
     Dates: start: 20060516, end: 20101001
  2. AMISULPRIDE [Suspect]
     Indication: SCHIZOPHRENIA
     Dosage: UNK
     Dates: start: 20060516

REACTIONS (5)
  - OBESITY [None]
  - DIABETES MELLITUS [None]
  - MENTAL IMPAIRMENT [None]
  - IRRITABLE BOWEL SYNDROME [None]
  - DIARRHOEA [None]
